FAERS Safety Report 13007347 (Version 2)
Quarter: 2017Q1

REPORT INFORMATION
  Report Type: Spontaneous
  Country: DK (occurrence: DK)
  Receive Date: 20161207
  Receipt Date: 20170131
  Transmission Date: 20170428
  Serious: Yes (Congenital Anomaly)
  Sender: FDA-Public Use
  Company Number: DK-MYLANLABS-2016M1053023

PATIENT

DRUGS (1)
  1. SUMATRIPTAN. [Suspect]
     Active Substance: SUMATRIPTAN
     Indication: MIGRAINE
     Dosage: DOSIS: VED BEHOV (CA. 3 GANGE UNDER GRAVIDITET), STYRKE: 50 MG
     Route: 064
     Dates: start: 20091130, end: 20100228

REACTIONS (6)
  - Premature baby [Unknown]
  - Growth retardation [Recovered/Resolved]
  - Congenital genital malformation male [Recovered/Resolved]
  - Foetal exposure during pregnancy [Unknown]
  - Male genital tract operation [Recovered/Resolved]
  - Foetal malnutrition [Recovered/Resolved]

NARRATIVE: CASE EVENT DATE: 20100501
